FAERS Safety Report 12908977 (Version 1)
Quarter: 2016Q4

REPORT INFORMATION
  Report Type: Spontaneous
  Country: US (occurrence: US)
  Receive Date: 20161103
  Receipt Date: 20161103
  Transmission Date: 20170207
  Serious: No
  Sender: FDA-Public Use
  Company Number: US-JAZZ-2016-US-016754

PATIENT
  Sex: Female

DRUGS (30)
  1. XYREM [Suspect]
     Active Substance: SODIUM OXYBATE
     Indication: NARCOLEPSY
     Dosage: 1.5 G, BID
     Route: 048
     Dates: start: 200805, end: 200805
  2. FLONASE [Concomitant]
     Active Substance: FLUTICASONE PROPIONATE
  3. BUTORPHANOL [Concomitant]
     Active Substance: BUTORPHANOL
  4. LEVOTHYROXINE. [Concomitant]
     Active Substance: LEVOTHYROXINE
  5. POTASSIUM CL [Concomitant]
     Active Substance: POTASSIUM CHLORIDE
  6. SUMAVEL DOSEPRO [Concomitant]
     Active Substance: SUMATRIPTAN SUCCINATE
  7. HYDROCODONE/ACETAMINOPHEN [Concomitant]
     Active Substance: ACETAMINOPHEN\HYDROCODONE
  8. FLUOXETINE [Concomitant]
     Active Substance: FLUOXETINE HYDROCHLORIDE
  9. FOLIC ACID. [Concomitant]
     Active Substance: FOLIC ACID
  10. PARICALCITOL. [Concomitant]
     Active Substance: PARICALCITOL
  11. PROGESTERONE. [Concomitant]
     Active Substance: PROGESTERONE
  12. XYREM [Suspect]
     Active Substance: SODIUM OXYBATE
     Dosage: 5 G, BID
     Route: 048
     Dates: start: 201311
  13. COMPAZINE [Concomitant]
     Active Substance: PROCHLORPERAZINE MALEATE
  14. SUMATRIPTAN. [Concomitant]
     Active Substance: SUMATRIPTAN
  15. ZOFRAN [Concomitant]
     Active Substance: ONDANSETRON HYDROCHLORIDE
  16. ESTRIOL [Concomitant]
     Active Substance: ESTRIOL
  17. NEXIUM [Concomitant]
     Active Substance: ESOMEPRAZOLE MAGNESIUM
  18. CLONIDINE HCL [Concomitant]
     Active Substance: CLONIDINE HYDROCHLORIDE
  19. DETROL LA [Concomitant]
     Active Substance: TOLTERODINE TARTRATE
  20. XYREM [Suspect]
     Active Substance: SODIUM OXYBATE
     Indication: CATAPLEXY
     Dosage: DOSE ADJUSTMENTS
     Route: 048
     Dates: start: 200805, end: 201311
  21. CLONAZEPAM. [Concomitant]
     Active Substance: CLONAZEPAM
  22. DEXTROAMPHETAMINE. [Concomitant]
     Active Substance: DEXTROAMPHETAMINE
  23. FLEXERIL [Concomitant]
     Active Substance: CYCLOBENZAPRINE HYDROCHLORIDE
  24. PROVIGIL [Concomitant]
     Active Substance: MODAFINIL
  25. SERTRALINE HCL [Concomitant]
     Active Substance: SERTRALINE HYDROCHLORIDE
  26. CORTEF [Concomitant]
     Active Substance: HYDROCORTISONE
  27. ETODOLAC. [Concomitant]
     Active Substance: ETODOLAC
  28. LISINOPRIL. [Concomitant]
     Active Substance: LISINOPRIL
  29. TOPAMAX [Concomitant]
     Active Substance: TOPIRAMATE
  30. TROKENDI [Concomitant]
     Active Substance: TOPIRAMATE

REACTIONS (1)
  - Arthritis [Unknown]
